FAERS Safety Report 8709354 (Version 2)
Quarter: 2012Q4

REPORT INFORMATION
  Report Type: 
  Country: US (occurrence: US)
  Receive Date: 20120806
  Receipt Date: 20120918
  Transmission Date: 20130627
  Serious: No
  Sender: FDA-Public Use
  Company Number: US-009507513-2012SP024745

PATIENT

DRUGS (3)
  1. CLARITIN [Suspect]
     Indication: SEASONAL ALLERGY
     Dosage: 10 mg, ONCE
     Route: 048
     Dates: start: 20120502, end: 20120502
  2. CLARITIN [Suspect]
     Indication: HOUSE DUST ALLERGY
  3. CLARITIN [Suspect]
     Indication: NASAL CONGESTION

REACTIONS (1)
  - Abdominal distension [Recovered/Resolved]
